FAERS Safety Report 8198898 (Version 5)
Quarter: 2012Q4

REPORT INFORMATION
  Report Type: 
  Country: US (occurrence: US)
  Receive Date: 20111025
  Receipt Date: 20120918
  Transmission Date: 20130627
  Serious: Yes (Hospitalization, Other)
  Sender: FDA-Public Use
  Company Number: US-009507513-1110USA03276

PATIENT

DRUGS (4)
  1. FOSAMAX [Suspect]
     Indication: OSTEOPOROSIS
     Dosage: 10 mg, qd
     Route: 048
     Dates: start: 1996, end: 20010206
  2. FOSAMAX [Suspect]
     Dosage: 70 mg oral, qw
     Route: 048
     Dates: start: 20010206, end: 20080213
  3. FOSAMAX [Suspect]
     Dosage: 5 mg, UNK
     Route: 048
     Dates: start: 20000119
  4. ALENDRONATE SODIUM [Suspect]
     Indication: OSTEOPOROSIS
     Dosage: 70 mg oral
     Route: 048
     Dates: start: 20080214, end: 200908

REACTIONS (53)
  - Lumbar spinal stenosis [Unknown]
  - Cervical spinal stenosis [Unknown]
  - Haemorrhagic anaemia [Unknown]
  - Fracture delayed union [Unknown]
  - Femur fracture [Unknown]
  - Depression [Recovered/Resolved]
  - Rotator cuff syndrome [Unknown]
  - Laceration [Unknown]
  - Fall [Unknown]
  - Lacunar infarction [Unknown]
  - Hypertension [Unknown]
  - Irritable bowel syndrome [Unknown]
  - Blood cholesterol increased [Unknown]
  - Eczema [Unknown]
  - Insomnia [Unknown]
  - Vulvovaginal dryness [Unknown]
  - Cellulitis [Unknown]
  - Cataract operation [Unknown]
  - Cataract operation [Unknown]
  - Spinal osteoarthritis [Unknown]
  - Device connection issue [Unknown]
  - Spinal osteoarthritis [Unknown]
  - Carotid arteriosclerosis [Unknown]
  - Aortic dilatation [Unknown]
  - Deformity [Unknown]
  - Exostosis [Unknown]
  - Chondrocalcinosis [Unknown]
  - Tendon calcification [Unknown]
  - Osteopenia [Unknown]
  - Constipation prophylaxis [Unknown]
  - Gout [Unknown]
  - Osteoarthritis [Not Recovered/Not Resolved]
  - Alcohol abuse [Unknown]
  - Limb deformity [Not Recovered/Not Resolved]
  - Spinal column stenosis [Not Recovered/Not Resolved]
  - Spinal osteoarthritis [Not Recovered/Not Resolved]
  - Musculoskeletal pain [Unknown]
  - Muscle spasms [Unknown]
  - Back pain [Unknown]
  - Gastrooesophageal reflux disease [Unknown]
  - Gastritis [Unknown]
  - Gastritis [Unknown]
  - Constipation [Unknown]
  - Blood potassium decreased [Recovered/Resolved]
  - Hyponatraemia [Recovered/Resolved]
  - Pyrexia [Recovered/Resolved]
  - Muscle spasms [Recovering/Resolving]
  - Fatigue [Recovered/Resolved]
  - Blood pressure inadequately controlled [Recovered/Resolved]
  - Gout [Recovered/Resolved]
  - Osteoarthritis [Unknown]
  - Osteoarthritis [Not Recovered/Not Resolved]
  - Hip arthroplasty [Unknown]
